FAERS Safety Report 6989779-2 (Version None)
Quarter: 2010Q3

REPORT INFORMATION
  Report Type: 
  Country: None (occurrence: None)
  Receive Date: 20100916
  Receipt Date: 20100222
  Transmission Date: 20110219
  Serious: Yes (Other)
  Sender: FDA-Public Use
  Company Number: US-PFIZER INC-2010007124

PATIENT
  Sex: Female
  Weight: 80.285 kg

DRUGS (8)
  1. LYRICA [Suspect]
     Indication: FIBROMYALGIA
     Dosage: 75 MG, 2X/DAY
     Route: 048
     Dates: start: 20091218, end: 20091222
  2. TYLENOL [Concomitant]
     Dosage: AS NEEDED
  3. PRILOSEC [Concomitant]
     Dosage: 20 MG, 1X/DAY
  4. LISINOPRIL AND HYDROCHLOROTHIAZIDE [Concomitant]
     Dosage: 20/12.5 DAILY
  5. CYMBALTA [Concomitant]
     Dosage: 60 MG, 1X/DAY
  6. HYDROCHLOROTHIAZIDE [Concomitant]
     Dosage: 12.5 MG, 1X/DAY
  7. SIMVASTATIN [Concomitant]
     Dosage: 10 MG, 1X/DAY
  8. AMBIEN [Concomitant]
     Dosage: 5 MG, 1X/DAY
     Route: 048

REACTIONS (7)
  - AMNESIA [None]
  - CONFUSIONAL STATE [None]
  - DIPLOPIA [None]
  - DIZZINESS [None]
  - DYSARTHRIA [None]
  - FEELING ABNORMAL [None]
  - SEDATION [None]
